FAERS Safety Report 19275935 (Version 2)
Quarter: 2021Q2

REPORT INFORMATION
  Report Type: Report from Study
  Country: AR (occurrence: AR)
  Receive Date: 20210519
  Receipt Date: 20210627
  Transmission Date: 20210717
  Serious: Yes (Hospitalization, Other)
  Sender: FDA-Public Use
  Company Number: NVSC2021AR107550

PATIENT
  Sex: Male

DRUGS (3)
  1. DIOVAN [Suspect]
     Active Substance: VALSARTAN
     Indication: HYPERTENSION
     Dosage: UNK
     Route: 065
  2. DIOVAN [Suspect]
     Active Substance: VALSARTAN
     Dosage: 3 DF, QD (3 FRACTIONED TABLETS DAILY (1 AND A HALF TABLETS IN THE MORNING AND 1 AND A HALF TABLETS I
     Route: 065
  3. DIOVAN [Suspect]
     Active Substance: VALSARTAN
     Dosage: UNK (20 YEARS AGO)
     Route: 065

REACTIONS (7)
  - Accident [Recovering/Resolving]
  - Pneumonia [Recovering/Resolving]
  - Inner ear inflammation [Unknown]
  - Blood pressure inadequately controlled [Recovering/Resolving]
  - Wrong technique in product usage process [Recovering/Resolving]
  - COVID-19 [Recovered/Resolved]
  - Deafness [Unknown]
